FAERS Safety Report 9408710 (Version 2)
Quarter: 2013Q3

REPORT INFORMATION
  Report Type: Spontaneous
  Country: US (occurrence: US)
  Receive Date: 20130718
  Receipt Date: 20130903
  Transmission Date: 20140515
  Serious: Yes (Death)
  Sender: FDA-Public Use
  Company Number: US-GILEAD-2013-0079422

PATIENT
  Sex: Male

DRUGS (2)
  1. LETAIRIS [Suspect]
     Indication: PULMONARY HYPERTENSION
     Dosage: 5 MG, QD
     Route: 048
     Dates: start: 201211, end: 201305
  2. LETAIRIS [Suspect]
     Indication: PULMONARY ARTERIAL HYPERTENSION

REACTIONS (6)
  - Pulmonary arterial hypertension [Fatal]
  - Renal failure [Fatal]
  - Disease progression [Fatal]
  - Cardiac failure [Fatal]
  - Neoplasm [Fatal]
  - Recurrent cancer [Fatal]
